FAERS Safety Report 15213048 (Version 1)
Quarter: 2018Q3

REPORT INFORMATION
  Report Type: Spontaneous
  Country: DE (occurrence: DE)
  Receive Date: 20180730
  Receipt Date: 20180730
  Transmission Date: 20181010
  Serious: Yes (Death, Other)
  Sender: FDA-Public Use
  Company Number: DE-ACCORD-070016

PATIENT
  Age: 65 Year
  Sex: Male

DRUGS (7)
  1. TENOFOVIR [Interacting]
     Active Substance: TENOFOVIR
     Indication: HIV INFECTION
     Route: 065
  2. EMTRICITABINE [Interacting]
     Active Substance: EMTRICITABINE
     Indication: HIV INFECTION
     Route: 065
  3. SIMVASTATIN. [Suspect]
     Active Substance: SIMVASTATIN
     Indication: PRODUCT USED FOR UNKNOWN INDICATION
     Route: 065
     Dates: start: 2010
  4. PANTOPRAZOLE [Interacting]
     Active Substance: PANTOPRAZOLE
     Indication: GASTROOESOPHAGEAL REFLUX DISEASE
     Route: 065
     Dates: start: 2010
  5. DOLUTEGRAVIR [Interacting]
     Active Substance: DOLUTEGRAVIR
     Indication: HIV INFECTION
     Dosage: UNK
     Route: 065
  6. METOPROLOL. [Interacting]
     Active Substance: METOPROLOL
     Indication: PRODUCT USED FOR UNKNOWN INDICATION
     Dosage: UNK
     Route: 065
     Dates: start: 2010
  7. ACETYLSALICYLIC ACID [Interacting]
     Active Substance: ASPIRIN
     Indication: PRODUCT USED FOR UNKNOWN INDICATION
     Dosage: UNK
     Dates: start: 2010

REACTIONS (23)
  - Pneumonia [Unknown]
  - Decreased appetite [Unknown]
  - Weight decreased [Unknown]
  - Drug interaction [Unknown]
  - Acute hepatic failure [Fatal]
  - Nausea [Unknown]
  - Chromaturia [Unknown]
  - Hepatitis [Unknown]
  - Neutropenic sepsis [Recovered/Resolved]
  - Ocular icterus [Unknown]
  - Asthenia [Unknown]
  - Fatigue [Unknown]
  - Metabolic acidosis [Unknown]
  - Hepatic enzyme increased [Not Recovered/Not Resolved]
  - Cholangitis [Unknown]
  - Jaundice [Unknown]
  - Multiple organ dysfunction syndrome [Unknown]
  - Sepsis [Unknown]
  - General physical health deterioration [Unknown]
  - Faeces pale [Unknown]
  - Upper gastrointestinal haemorrhage [Unknown]
  - Coagulopathy [Unknown]
  - Candida infection [Unknown]

NARRATIVE: CASE EVENT DATE: 201503
